FAERS Safety Report 9559730 (Version 4)
Quarter: 2013Q4

REPORT INFORMATION
  Report Type: Spontaneous
  Country: US (occurrence: US)
  Receive Date: 20130927
  Receipt Date: 20131108
  Transmission Date: 20140711
  Serious: Yes (Hospitalization)
  Sender: FDA-Public Use
  Company Number: US-B.I. PHARMACEUTICALS,INC./RIDGEFIELD-2011-BP-01390BP

PATIENT
  Age: 77 Year
  Sex: Female
  Weight: 95.25 kg

DRUGS (12)
  1. PRADAXA [Suspect]
     Indication: ATRIAL FIBRILLATION
     Dosage: 300 MG
     Route: 048
     Dates: start: 20101120, end: 20120608
  2. PRADAXA [Suspect]
     Indication: ANTICOAGULANT THERAPY
  3. ASPIRIN [Concomitant]
     Indication: CARDIAC DISORDER
     Dosage: 81 MG
     Route: 048
  4. DIGOXIN [Concomitant]
     Indication: CARDIAC DISORDER
     Dosage: 0.125 MG
     Route: 048
  5. KLOR-CON [Concomitant]
     Indication: CARDIAC DISORDER
     Dosage: 10 MEQ
     Route: 048
     Dates: start: 2008, end: 2012
  6. METOPROLOL [Concomitant]
     Indication: CARDIAC DISORDER
     Dosage: 75 MG
     Route: 048
     Dates: start: 2008, end: 2012
  7. METOPROLOL [Concomitant]
     Indication: HYPERTENSION
  8. LIPITOR [Concomitant]
     Indication: HYPERCHOLESTEROLAEMIA
     Dosage: 10 MG
     Route: 048
     Dates: start: 2008, end: 2012
  9. FUROSEMIDE [Concomitant]
     Indication: FLUID RETENTION
     Dosage: 40 MG
     Route: 048
     Dates: start: 2008, end: 2012
  10. FUROSEMIDE [Concomitant]
     Indication: HYPERTENSION
  11. MICARDIS [Concomitant]
     Indication: HYPERTENSION
     Dosage: 80 MG
     Route: 048
     Dates: start: 2009, end: 2012
  12. PANTOPRAZOLE [Concomitant]
     Dosage: 40 MG
     Dates: start: 2008, end: 2012

REACTIONS (8)
  - Gastrointestinal haemorrhage [Unknown]
  - Rectal haemorrhage [Recovered/Resolved]
  - Rectal haemorrhage [Unknown]
  - Abdominal pain [Unknown]
  - Haemorrhagic anaemia [Unknown]
  - Coagulopathy [Unknown]
  - Haemoptysis [Unknown]
  - Contusion [Not Recovered/Not Resolved]
